FAERS Safety Report 25939251 (Version 1)
Quarter: 2025Q4

REPORT INFORMATION
  Report Type: Spontaneous
  Country: US (occurrence: US)
  Receive Date: 20251020
  Receipt Date: 20251020
  Transmission Date: 20260117
  Serious: No
  Sender: BAUSCH AND LOMB
  Company Number: US-BAUSCHBL-2025BNL030490

PATIENT

DRUGS (1)
  1. XIIDRA [Suspect]
     Active Substance: LIFITEGRAST
     Indication: Product used for unknown indication
     Dosage: 1 DROP INTO EACH EYE TWICE DAILY
     Dates: start: 202509, end: 2025

REACTIONS (1)
  - Nasal dryness [Not Recovered/Not Resolved]

NARRATIVE: CASE EVENT DATE: 20250101
